FAERS Safety Report 7070458-0 (Version None)
Quarter: 2010Q4

REPORT INFORMATION
  Report Type: 
  Country: None (occurrence: None)
  Receive Date: 20101027
  Receipt Date: 20101027
  Transmission Date: 20110411
  Serious: Yes (Life-Threatening)
  Sender: FDA-Public Use
  Company Number: None

PATIENT
  Age: 81 Year
  Sex: Male
  Weight: 78.6 kg

DRUGS (1)
  1. ULTRAM [Suspect]
     Indication: GOUT
     Dosage: 50MG 8 HOURS PRN BY MOUTH
     Route: 048
     Dates: start: 20100826

REACTIONS (1)
  - CONVULSION [None]
